FAERS Safety Report 5235172-2 (Version None)
Quarter: 2007Q1

REPORT INFORMATION
  Report Type: 
  Country: None (occurrence: None)
  Receive Date: 20070211
  Receipt Date: 20070118
  Transmission Date: 20070707
  Serious: Yes (Hospitalization)
  Sender: FDA-Public Use
  Company Number: FI-RB-005120-07

PATIENT
  Sex: Male

DRUGS (5)
  1. SUBOXONE [Suspect]
     Indication: DRUG DEPENDENCE
     Route: 065
     Dates: start: 20061211, end: 20061219
  2. OXEPAM [Concomitant]
     Indication: ANXIETY
     Route: 048
  3. OXEPAM [Concomitant]
     Indication: DRUG DEPENDENCE
     Route: 048
  4. ZOPINOX [Concomitant]
     Indication: INSOMNIA
     Route: 048
  5. BUPRENORPHINE HCL [Concomitant]
     Dosage: DOSAGE UNKNOWN
     Route: 065

REACTIONS (1)
  - DERMATITIS [None]
